FAERS Safety Report 20036597 (Version 1)
Quarter: 2021Q4

REPORT INFORMATION
  Report Type: Spontaneous
  Country: US (occurrence: US)
  Receive Date: 20211105
  Receipt Date: 20211105
  Transmission Date: 20220303
  Serious: No
  Sender: FDA-Public Use
  Company Number: US-SA-SAC20211102000125

PATIENT
  Age: 42 Year
  Sex: Female

DRUGS (6)
  1. DUPIXENT [Suspect]
     Active Substance: DUPILUMAB
     Indication: Dermatitis atopic
     Dosage: 300 MG, QOW
     Route: 058
     Dates: start: 20210827
  2. TERCONAZOLE [Concomitant]
     Active Substance: TERCONAZOLE
  3. FERROUS SULFATE [Concomitant]
     Active Substance: FERROUS SULFATE
  4. METRONIDAZOLE [Concomitant]
     Active Substance: METRONIDAZOLE
  5. VITAMINS NOS [Concomitant]
     Active Substance: VITAMINS
  6. NITROFURANTOIN [Concomitant]
     Active Substance: NITROFURANTOIN

REACTIONS (2)
  - Eye irritation [Unknown]
  - Eye pruritus [Unknown]

NARRATIVE: CASE EVENT DATE: 20211017
